FAERS Safety Report 5423527-2 (Version None)
Quarter: 2007Q3

REPORT INFORMATION
  Report Type: 
  Country: None (occurrence: None)
  Receive Date: 20070823
  Receipt Date: 20070817
  Transmission Date: 20080115
  Serious: Yes (Other)
  Sender: FDA-Public Use
  Company Number: HQWYE884321DEC06

PATIENT
  Sex: Female
  Weight: 65 kg

DRUGS (9)
  1. SIROLIMUS [Suspect]
     Indication: PROPHYLAXIS AGAINST TRANSPLANT REJECTION
     Route: 048
     Dates: start: 20051124
  2. ALENDRONATE SODIUM [Concomitant]
     Indication: OSTEOPOROSIS
     Route: 048
     Dates: start: 20050404
  3. SULFAMETHOXAZOLE AND TRIMETHOPRIM [Concomitant]
     Indication: ANTIFUNGAL PROPHYLAXIS
     Dosage: 800/160 THREE TIME A WEEK
     Route: 048
     Dates: start: 20051224
  4. FOLIC ACID [Concomitant]
     Indication: PROPHYLAXIS
     Route: 048
     Dates: start: 20050217
  5. BROMAZEPAM [Concomitant]
     Indication: IRRITABLE BOWEL SYNDROME
     Dosage: UNSPECIFIED DOSE; TWICE DAILY
     Route: 048
     Dates: start: 20050728
  6. AMOROLFINE [Concomitant]
     Dosage: UNSPECIFIED DOSE
     Route: 061
     Dates: start: 20061026
  7. CARVEDILOL [Concomitant]
     Indication: HYPERTENSION
     Route: 048
     Dates: start: 20060124
  8. OMEPRAZOLE [Concomitant]
     Indication: PROPHYLAXIS AGAINST GASTROINTESTINAL ULCER
     Route: 048
     Dates: start: 20030120
  9. CALCIUM [Concomitant]
     Indication: OSTEOPOROSIS
     Route: 048
     Dates: start: 20050604

REACTIONS (1)
  - TRANSPLANT REJECTION [None]
